FAERS Safety Report 6783498-3 (Version None)
Quarter: 2010Q2

REPORT INFORMATION
  Report Type: 
  Country: None (occurrence: None)
  Receive Date: 20100622
  Receipt Date: 20100609
  Transmission Date: 20101027
  Serious: Yes (Hospitalization)
  Sender: FDA-Public Use
  Company Number: PHHY2010CA38073

PATIENT
  Sex: Male

DRUGS (1)
  1. SANDOSTATIN LAR [Suspect]
     Indication: DIARRHOEA
     Dosage: 20 MG, EVERY 4 WEEKS
     Route: 030
     Dates: start: 20100319

REACTIONS (1)
  - ABDOMINAL INFECTION [None]
